FAERS Safety Report 23982816 (Version 2)
Quarter: 2024Q3

REPORT INFORMATION
  Report Type: Spontaneous
  Country: US (occurrence: US)
  Receive Date: 20240617
  Receipt Date: 20240715
  Transmission Date: 20241016
  Serious: No
  Sender: ABBVIE
  Company Number: US-ABBVIE-5798242

PATIENT
  Sex: Male

DRUGS (3)
  1. UPADACITINIB [Suspect]
     Active Substance: UPADACITINIB
     Indication: Colitis ulcerative
     Dosage: DOSE TITRATION?FORM STRENGTH:15 MILLIGRAM
     Route: 048
  2. UPADACITINIB [Suspect]
     Active Substance: UPADACITINIB
     Indication: Colitis ulcerative
     Dosage: DOSE TITRATION?FORM STRENGTH:45 MILLIGRAM
     Route: 048
  3. UPADACITINIB [Suspect]
     Active Substance: UPADACITINIB
     Indication: Colitis ulcerative
     Dosage: DOSE TITRATION?FORM STRENGTH:30 MILLIGRAM
     Route: 048

REACTIONS (2)
  - Therapeutic product effect decreased [Unknown]
  - Unevaluable event [Unknown]
